FAERS Safety Report 14589909 (Version 1)
Quarter: 2018Q1

REPORT INFORMATION
  Report Type: Report from Study
  Country: DE (occurrence: DE)
  Receive Date: 20180302
  Receipt Date: 20180302
  Transmission Date: 20180509
  Serious: Yes (Other)
  Sender: FDA-Public Use
  Company Number: DE-ADIENNEP-2018AD000111

PATIENT
  Sex: Male
  Weight: 86 kg

DRUGS (4)
  1. ETOPOSIDE. [Concomitant]
     Active Substance: ETOPOSIDE
     Dosage: 400 MG/M2
  2. MELPHALAN. [Concomitant]
     Active Substance: MELPHALAN
     Dosage: 140 MG/M2
  3. TEPADINA [Suspect]
     Active Substance: THIOTEPA
     Dosage: 10 MG/KG
     Route: 042
     Dates: start: 20170203
  4. CYTARABINE. [Concomitant]
     Active Substance: CYTARABINE
     Dosage: 400 MG/M2

REACTIONS (9)
  - Thrombocytopenia [Recovered/Resolved]
  - Anaemia [Recovered/Resolved]
  - Febrile neutropenia [Recovered/Resolved]
  - Stomatitis [Recovered/Resolved]
  - Leukopenia [Recovered/Resolved]
  - Pyrexia [Recovered/Resolved]
  - Neutropenia [Recovered/Resolved]
  - Ejection fraction decreased [Not Recovered/Not Resolved]
  - Diarrhoea [Recovered/Resolved]

NARRATIVE: CASE EVENT DATE: 20170309
